FAERS Safety Report 7821731-7 (Version None)
Quarter: 2011Q4

REPORT INFORMATION
  Report Type: 
  Country: None (occurrence: None)
  Receive Date: 20111018
  Receipt Date: 20110329
  Transmission Date: 20120403
  Serious: No
  Sender: FDA-Public Use
  Company Number: US-ASTRAZENECA-2011SE18081

PATIENT
  Age: 24549 Day
  Sex: Male

DRUGS (6)
  1. METFORMIN HCL [Concomitant]
  2. PROAIR HFA [Concomitant]
  3. GLIPAZIDE [Concomitant]
  4. SYMBICORT [Suspect]
     Indication: CHRONIC OBSTRUCTIVE PULMONARY DISEASE
     Dosage: 160/4.5 MCG TWO PUFFS BID
     Route: 055
     Dates: start: 20110309
  5. DUONEB [Concomitant]
  6. COZAAR [Concomitant]

REACTIONS (4)
  - BURNING SENSATION [None]
  - MUSCLE TIGHTNESS [None]
  - MUSCLE SPASMS [None]
  - GLOSSODYNIA [None]
